FAERS Safety Report 4354862-7 (Version None)
Quarter: 2004Q2

REPORT INFORMATION
  Report Type: 
  Country: None (occurrence: None)
  Receive Date: 20040507
  Receipt Date: 20030409
  Transmission Date: 20050107
  Serious: Yes (Disabling, Other)
  Sender: FDA-Public Use
  Company Number: US-BRISTOL-MYERS SQUIBB COMPANY-12242038

PATIENT
  Age: 28 Year
  Sex: Male

DRUGS (1)
  1. STADOL [Suspect]
     Indication: PAIN
     Route: 045
     Dates: start: 19930101, end: 19950101

REACTIONS (2)
  - DEAFNESS [None]
  - DEPENDENCE [None]
